FAERS Safety Report 19748723 (Version 1)
Quarter: 2021Q3

REPORT INFORMATION
  Report Type: Spontaneous
  Country: US (occurrence: US)
  Receive Date: 20210823
  Receipt Date: 20210823
  Transmission Date: 20211014
  Serious: No
  Sender: FDA-Public Use
  Company Number: None

PATIENT

DRUGS (2)
  1. SINGULAIR [Suspect]
     Active Substance: MONTELUKAST SODIUM
  2. SINEQUAN [Suspect]
     Active Substance: DOXEPIN HYDROCHLORIDE

REACTIONS (3)
  - Transcription medication error [None]
  - Product dispensing error [None]
  - Product name confusion [None]
